FAERS Safety Report 7809467-X (Version None)
Quarter: 2011Q4

REPORT INFORMATION
  Report Type: 
  Country: None (occurrence: None)
  Receive Date: 20111012
  Receipt Date: 20110929
  Transmission Date: 20120403
  Serious: Yes (Hospitalization, Other)
  Sender: FDA-Public Use
  Company Number: PHHY2011JP75943

PATIENT
  Age: 68 Year
  Sex: Female

DRUGS (3)
  1. H2-RECEPTOR ANTAGONISTS [Concomitant]
  2. DIOVAN [Suspect]
     Indication: HYPERTENSION
     Dosage: 40 MG, QD
     Route: 048
     Dates: end: 20110831
  3. AMLODIPINE [Suspect]
     Dosage: 5 MG, QD
     Route: 048
     Dates: end: 20110907

REACTIONS (2)
  - LARYNGEAL OEDEMA [None]
  - INFECTION [None]
